FAERS Safety Report 6148633-9 (Version None)
Quarter: 2009Q2

REPORT INFORMATION
  Report Type: 
  Country: None (occurrence: None)
  Receive Date: 20090408
  Receipt Date: 20090330
  Transmission Date: 20091009
  Serious: Yes (Hospitalization)
  Sender: FDA-Public Use
  Company Number: DE-WATSON-2009-02107

PATIENT
  Age: 55 Year
  Sex: Male

DRUGS (4)
  1. IRINOTECAN HYDROCHLORIDE [Suspect]
     Indication: COLON CANCER METASTATIC
     Dosage: UNK
  2. FLUOROURACIL [Suspect]
     Indication: COLON CANCER
     Dosage: UNK
  3. FOLINIC ACID [Concomitant]
     Indication: COLON CANCER
     Dosage: UNK
  4. BEVACIZUMAB [Suspect]
     Indication: COLON CANCER
     Dosage: UNK

REACTIONS (2)
  - HEPATIC FAILURE [None]
  - HEPATIC STEATOSIS [None]
